FAERS Safety Report 6534562-5 (Version None)
Quarter: 2010Q1

REPORT INFORMATION
  Report Type: 
  Country: None (occurrence: None)
  Receive Date: 20100112
  Receipt Date: 20100108
  Transmission Date: 20100710
  Serious: Yes (Death)
  Sender: FDA-Public Use
  Company Number: US-GILEAD-2010-0026382

PATIENT
  Sex: Female
  Weight: 59.474 kg

DRUGS (19)
  1. LETAIRIS [Suspect]
     Indication: PULMONARY ARTERIAL HYPERTENSION
     Route: 048
     Dates: start: 20080125, end: 20100106
  2. SPIRONOLACTONE [Concomitant]
  3. FLOLAN [Concomitant]
  4. AMIODARONE HCL [Concomitant]
  5. LIPITOR [Concomitant]
  6. COUMADIN [Concomitant]
  7. TORSEMIDE [Concomitant]
  8. REVATIO [Concomitant]
  9. OXYGEN [Concomitant]
  10. ALBUTEROL [Concomitant]
  11. RECLAST [Concomitant]
  12. PRILOSEC [Concomitant]
  13. FEOSOL [Concomitant]
  14. NEXIUM [Concomitant]
  15. SYNTHROID [Concomitant]
  16. LUMIGAN [Concomitant]
  17. VITAMIN C [Concomitant]
  18. MULTI-VITAMIN [Concomitant]
  19. TYLENOL (CAPLET) [Concomitant]

REACTIONS (1)
  - DEATH [None]
